FAERS Safety Report 25886882 (Version 1)
Quarter: 2025Q4

REPORT INFORMATION
  Report Type: Spontaneous
  Country: EU (occurrence: EU)
  Receive Date: 20251006
  Receipt Date: 20251006
  Transmission Date: 20260118
  Serious: Yes (Life-Threatening, Hospitalization)
  Sender: MYLAN
  Company Number: None

PATIENT
  Age: 42 Year
  Sex: Female

DRUGS (20)
  1. GABAPENTIN [Suspect]
     Active Substance: GABAPENTIN
     Indication: Product used for unknown indication
     Dosage: 1 DOSAGE FORM
     Dates: start: 20250828, end: 20250828
  2. GABAPENTIN [Suspect]
     Active Substance: GABAPENTIN
     Dosage: 1 DOSAGE FORM
     Route: 048
     Dates: start: 20250828, end: 20250828
  3. GABAPENTIN [Suspect]
     Active Substance: GABAPENTIN
     Dosage: 1 DOSAGE FORM
     Route: 048
     Dates: start: 20250828, end: 20250828
  4. GABAPENTIN [Suspect]
     Active Substance: GABAPENTIN
     Dosage: 1 DOSAGE FORM
     Dates: start: 20250828, end: 20250828
  5. ACETAMINOPHEN\OPIUM [Suspect]
     Active Substance: ACETAMINOPHEN\OPIUM
     Indication: Product used for unknown indication
     Dosage: 1 DOSAGE FORM
     Dates: start: 20250828, end: 20250828
  6. ACETAMINOPHEN\OPIUM [Suspect]
     Active Substance: ACETAMINOPHEN\OPIUM
     Dosage: 1 DOSAGE FORM
     Route: 048
     Dates: start: 20250828, end: 20250828
  7. ACETAMINOPHEN\OPIUM [Suspect]
     Active Substance: ACETAMINOPHEN\OPIUM
     Dosage: 1 DOSAGE FORM
     Route: 048
     Dates: start: 20250828, end: 20250828
  8. ACETAMINOPHEN\OPIUM [Suspect]
     Active Substance: ACETAMINOPHEN\OPIUM
     Dosage: 1 DOSAGE FORM
     Dates: start: 20250828, end: 20250828
  9. MORPHINE SULFATE [Suspect]
     Active Substance: MORPHINE SULFATE
     Indication: Product used for unknown indication
     Dosage: 420 MILLIGRAM
     Dates: start: 20250828, end: 20250828
  10. MORPHINE SULFATE [Suspect]
     Active Substance: MORPHINE SULFATE
     Dosage: 420 MILLIGRAM
     Route: 048
     Dates: start: 20250828, end: 20250828
  11. MORPHINE SULFATE [Suspect]
     Active Substance: MORPHINE SULFATE
     Dosage: 420 MILLIGRAM
     Route: 048
     Dates: start: 20250828, end: 20250828
  12. MORPHINE SULFATE [Suspect]
     Active Substance: MORPHINE SULFATE
     Dosage: 420 MILLIGRAM
     Dates: start: 20250828, end: 20250828
  13. DULOXETINE HYDROCHLORIDE [Concomitant]
     Active Substance: DULOXETINE HYDROCHLORIDE
     Indication: Depression
     Dosage: 30 MILLIGRAM, QD
  14. DULOXETINE HYDROCHLORIDE [Concomitant]
     Active Substance: DULOXETINE HYDROCHLORIDE
     Dosage: 30 MILLIGRAM, QD
     Route: 048
  15. DULOXETINE HYDROCHLORIDE [Concomitant]
     Active Substance: DULOXETINE HYDROCHLORIDE
     Dosage: 30 MILLIGRAM, QD
     Route: 048
  16. DULOXETINE HYDROCHLORIDE [Concomitant]
     Active Substance: DULOXETINE HYDROCHLORIDE
     Dosage: 30 MILLIGRAM, QD
  17. LEVONORGESTREL [Concomitant]
     Active Substance: LEVONORGESTREL
     Indication: Contraception
     Dosage: 1 DOSAGE FORM, QD
  18. LEVONORGESTREL [Concomitant]
     Active Substance: LEVONORGESTREL
     Dosage: 1 DOSAGE FORM, QD
     Route: 048
  19. LEVONORGESTREL [Concomitant]
     Active Substance: LEVONORGESTREL
     Dosage: 1 DOSAGE FORM, QD
     Route: 048
  20. LEVONORGESTREL [Concomitant]
     Active Substance: LEVONORGESTREL
     Dosage: 1 DOSAGE FORM, QD

REACTIONS (2)
  - Coma [Recovered/Resolved]
  - Poisoning deliberate [Recovered/Resolved]

NARRATIVE: CASE EVENT DATE: 20250828
